FAERS Safety Report 21617923 (Version 1)
Quarter: 2022Q4

REPORT INFORMATION
  Report Type: Spontaneous
  Country: US (occurrence: US)
  Receive Date: 20221119
  Receipt Date: 20221119
  Transmission Date: 20230113
  Serious: No
  Sender: FDA-Public Use
  Company Number: US-AUROBINDO-AUR-APL-2021-050928

PATIENT
  Sex: Female

DRUGS (1)
  1. PANTOPRAZOLE SODIUM [Suspect]
     Active Substance: PANTOPRAZOLE SODIUM
     Indication: Abdominal discomfort
     Dosage: UNK (ONCE A DAY AND SOMETIMES TWICE DAY)
     Route: 065

REACTIONS (3)
  - Muscle spasms [Unknown]
  - Vision blurred [Unknown]
  - Dizziness [Unknown]
